FAERS Safety Report 17599264 (Version 1)
Quarter: 2020Q1

REPORT INFORMATION
  Report Type: Report from Study
  Country: US (occurrence: US)
  Receive Date: 20200330
  Receipt Date: 20200330
  Transmission Date: 20200409
  Serious: Yes (Hospitalization, Other)
  Sender: FDA-Public Use
  Company Number: US-MYLANLABS-2020M1033415

PATIENT
  Age: 76 Year
  Sex: Female

DRUGS (20)
  1. AMPICILLIN [Suspect]
     Active Substance: AMPICILLIN
     Dosage: CONTINUOUS IV INFUSION; INFUSION..
     Route: 042
  2. AMPICILLIN [Suspect]
     Active Substance: AMPICILLIN
     Dosage: CONTINUOUS IV INFUSION; INFUSION..
     Route: 042
  3. AMPICILLIN [Suspect]
     Active Substance: AMPICILLIN
     Dosage: CONTINUOUS IV INFUSION; INFUSION..
     Route: 042
  4. AMPICILLIN [Suspect]
     Active Substance: AMPICILLIN
     Dosage: CONTINUOUS IV INFUSION; INFUSION..
     Route: 042
  5. AMPICILLIN [Suspect]
     Active Substance: AMPICILLIN
     Indication: ENDOCARDITIS ENTEROCOCCAL
  6. AMPICILLIN [Suspect]
     Active Substance: AMPICILLIN
     Dosage: CONTINUOUS IV INFUSION; INFUSION..
     Route: 042
  7. AMPICILLIN [Suspect]
     Active Substance: AMPICILLIN
     Dosage: CONTINUOUS IV INFUSION; INFUSION..
     Route: 042
  8. AMPICILLIN [Suspect]
     Active Substance: AMPICILLIN
     Dosage: CONTINUOUS IV INFUSION; INFUSION..
     Route: 042
  9. AMPICILLIN [Suspect]
     Active Substance: AMPICILLIN
     Indication: ENTEROCOCCAL BACTERAEMIA
     Dosage: UNK
     Route: 065
  10. AMPICILLIN [Suspect]
     Active Substance: AMPICILLIN
     Dosage: CONTINUOUS IV INFUSION; INFUSION..
     Route: 042
  11. CEFTRIAXONE. [Suspect]
     Active Substance: CEFTRIAXONE
     Indication: IMMUNE TOLERANCE INDUCTION
     Dosage: CONTINUOUS IV INFUSION; INFUSION..
     Route: 042
  12. AMPICILLIN [Suspect]
     Active Substance: AMPICILLIN
     Indication: IMMUNE TOLERANCE INDUCTION
     Dosage: CONTINUOUS IV INFUSION; INFUSION..
     Route: 042
  13. AMPICILLIN [Suspect]
     Active Substance: AMPICILLIN
     Dosage: CONTINUOUS IV INFUSION; INFUSION..
     Route: 042
  14. NORMAL SALINE [Concomitant]
     Active Substance: SODIUM CHLORIDE
     Indication: DRUG THERAPY
     Dosage: CONTINUOUS IV INFUSION;
     Route: 042
  15. CEFTRIAXONE. [Suspect]
     Active Substance: CEFTRIAXONE
     Dosage: THE CEFTRIAXONE IN INFUSION..
     Route: 042
  16. AMPICILLIN [Suspect]
     Active Substance: AMPICILLIN
     Dosage: CONTINUOUS IV INFUSION; INFUSION..
     Route: 042
  17. AMPICILLIN [Suspect]
     Active Substance: AMPICILLIN
     Dosage: CONTINUOUS IV INFUSION; INFUSION..
     Route: 042
  18. AMPICILLIN [Suspect]
     Active Substance: AMPICILLIN
     Dosage: CONTINUOUS IV INFUSION; INFUSION..
     Route: 042
  19. NORMAL SALINE [Concomitant]
     Active Substance: SODIUM CHLORIDE
     Dosage: CONTINUOUS IV INFUSION;
     Route: 042
  20. DEXTROSE. [Concomitant]
     Active Substance: DEXTROSE
     Indication: DRUG THERAPY
     Dosage: CONTINUOUS IV INFUSION; DEXTROSE..
     Route: 042

REACTIONS (3)
  - Rash [Unknown]
  - Anaphylactic reaction [Recovered/Resolved]
  - Bronchospasm [Unknown]
